FAERS Safety Report 9622476 (Version 1)
Quarter: 2013Q4

REPORT INFORMATION
  Report Type: Spontaneous
  Country: US (occurrence: GB)
  Receive Date: 20131015
  Receipt Date: 20131015
  Transmission Date: 20140711
  Serious: Yes (Hospitalization)
  Sender: FDA-Public Use
  Company Number: GB-PFIZER INC-2013292305

PATIENT
  Age: 19 Year
  Sex: Male

DRUGS (8)
  1. PHENYTOIN [Suspect]
     Indication: EPILEPSY
     Dosage: 300 MG, DAILY
  2. PHENYTOIN [Interacting]
     Dosage: 600 MG, DAILY
  3. PHENYTOIN [Interacting]
     Dosage: 150 MG, DAILY
  4. PHENYTOIN [Interacting]
     Dosage: 250 MG, DAILY
  5. SULTHIAME [Interacting]
     Indication: EPILEPSY
     Dosage: 300 MG, DAILY
  6. PHENOBARBITONE [Concomitant]
     Indication: EPILEPSY
     Dosage: 180 MG, DAILY
  7. DIAZEPAM [Concomitant]
     Indication: EPILEPSY
     Dosage: 30 MG, DAILY
  8. BECLAMIDE [Concomitant]
     Indication: EPILEPSY
     Dosage: 1500 MG, DAILY

REACTIONS (4)
  - Drug interaction [Recovering/Resolving]
  - Toxicity to various agents [Recovering/Resolving]
  - Anticonvulsant drug level increased [Recovered/Resolved]
  - Choreoathetosis [Recovering/Resolving]
